FAERS Safety Report 13127483 (Version 6)
Quarter: 2017Q2

REPORT INFORMATION
  Report Type: Spontaneous
  Country: US (occurrence: US)
  Receive Date: 20170118
  Receipt Date: 20170518
  Transmission Date: 20170830
  Serious: Yes (Hospitalization)
  Sender: FDA-Public Use
  Company Number: US-ACTELION-A-US2017-148388

PATIENT
  Age: 54 Year
  Sex: Female

DRUGS (20)
  1. TOPAMAX [Concomitant]
     Active Substance: TOPIRAMATE
  2. DIGOXIN. [Concomitant]
     Active Substance: DIGOXIN
  3. TRAMADOL. [Concomitant]
     Active Substance: TRAMADOL
  4. PROAIR HFA [Concomitant]
     Active Substance: ALBUTEROL SULFATE
  5. OPSUMIT [Suspect]
     Active Substance: MACITENTAN
     Indication: PULMONARY ARTERIAL HYPERTENSION
     Dosage: 10 MG, QD
     Route: 048
     Dates: start: 20160503
  6. TORSEMIDE. [Concomitant]
     Active Substance: TORSEMIDE
  7. AZATHIOPRINE. [Concomitant]
     Active Substance: AZATHIOPRINE
  8. PERCOCET [Concomitant]
     Active Substance: ACETAMINOPHEN\OXYCODONE HYDROCHLORIDE
  9. AMLODIPINE [Concomitant]
     Active Substance: AMLODIPINE BESYLATE
  10. CLONIDINE. [Concomitant]
     Active Substance: CLONIDINE
  11. TEKTURNA [Concomitant]
     Active Substance: ALISKIREN HEMIFUMARATE
  12. SYNTHROID [Concomitant]
     Active Substance: LEVOTHYROXINE SODIUM
  13. SILDENAFIL. [Concomitant]
     Active Substance: SILDENAFIL
  14. DILAUDID [Concomitant]
     Active Substance: HYDROMORPHONE HYDROCHLORIDE
  15. CYCLOBENZAPRINE. [Concomitant]
     Active Substance: CYCLOBENZAPRINE
  16. REMODULIN [Concomitant]
     Active Substance: TREPROSTINIL
     Route: 042
  17. METOLAZONE. [Concomitant]
     Active Substance: METOLAZONE
  18. CLINDAMYCIN. [Concomitant]
     Active Substance: CLINDAMYCIN
  19. XYZAL [Concomitant]
     Active Substance: LEVOCETIRIZINE DIHYDROCHLORIDE
  20. PRAVASTATIN. [Concomitant]
     Active Substance: PRAVASTATIN

REACTIONS (6)
  - Tooth extraction [Recovering/Resolving]
  - Dyspnoea [Unknown]
  - Neck pain [Not Recovered/Not Resolved]
  - Diarrhoea [Recovering/Resolving]
  - Chronic obstructive pulmonary disease [Not Recovered/Not Resolved]
  - Herpes zoster [Unknown]

NARRATIVE: CASE EVENT DATE: 20170111
